FAERS Safety Report 6944486-7 (Version None)
Quarter: 2010Q3

REPORT INFORMATION
  Report Type: 
  Country: None (occurrence: None)
  Receive Date: 20100827
  Receipt Date: 20100817
  Transmission Date: 20110219
  Serious: Yes (Life-Threatening)
  Sender: FDA-Public Use
  Company Number: NL-PFIZER INC-2010103771

PATIENT
  Age: 75 Year
  Sex: Male

DRUGS (9)
  1. LIPITOR [Suspect]
     Dosage: 1200 MG, UNK
  2. NORVASC [Suspect]
     Dosage: 300 MG, UNK
  3. ACENOCOUMAROL [Suspect]
     Dosage: 98 MG, UNK
  4. LANOXIN [Suspect]
     Dosage: 7.125 MG, UNK
  5. PERINDOPRIL ERBUMINE [Suspect]
     Dosage: 200 MG, UNK
  6. CORDARONE [Suspect]
     Dosage: UNK
  7. SOTALOL [Suspect]
     Dosage: 7200 MG, UNK
  8. PROMOCARD [Suspect]
     Dosage: 6000 MG, UNK
  9. LASIX [Suspect]
     Dosage: 800 MG, UNK

REACTIONS (8)
  - CARDIOGENIC SHOCK [None]
  - DISORIENTATION [None]
  - DRUG INTERACTION [None]
  - ELECTROCARDIOGRAM QRS COMPLEX PROLONGED [None]
  - ELECTROCARDIOGRAM QT PROLONGED [None]
  - OVERDOSE [None]
  - RENAL FAILURE [None]
  - VENTRICULAR ARRHYTHMIA [None]
